FAERS Safety Report 17042156 (Version 1)
Quarter: 2019Q4

REPORT INFORMATION
  Report Type: Spontaneous
  Country: US (occurrence: US)
  Receive Date: 20191112
  Receipt Date: 20191112
  Transmission Date: 20200122
  Serious: No
  Sender: FDA-Public Use
  Company Number: None

PATIENT
  Sex: Male

DRUGS (1)
  1. PHILLIPS MILK OF MAGNESIA WILD CHERRY [Suspect]
     Active Substance: MAGNESIUM HYDROXIDE
     Indication: DYSPEPSIA
     Dates: start: 20191112, end: 20191112

REACTIONS (1)
  - Manufacturing materials issue [None]

NARRATIVE: CASE EVENT DATE: 20191112
